FAERS Safety Report 9087861 (Version 1)
Quarter: 2013Q1

REPORT INFORMATION
  Report Type: Report from Study
  Country: US (occurrence: US)
  Receive Date: 20130130
  Receipt Date: 20130130
  Transmission Date: 20140127
  Serious: No
  Sender: FDA-Public Use
  Company Number: US-ABBOTT-12P-163-0988698-00

PATIENT
  Age: 46 None
  Sex: Female

DRUGS (3)
  1. HUMIRA [Suspect]
     Indication: RHEUMATOID ARTHRITIS
     Dates: start: 201011, end: 20120825
  2. HUMIRA [Suspect]
     Dates: start: 20120915
  3. DECADRON [Suspect]
     Indication: PRODUCT USED FOR UNKNOWN INDICATION
     Route: 050
     Dates: start: 20120914, end: 20120914

REACTIONS (4)
  - Sinusitis [Recovered/Resolved]
  - Cough [Recovering/Resolving]
  - Upper respiratory tract infection [Recovered/Resolved]
  - Pharyngitis streptococcal [Recovered/Resolved]
